FAERS Safety Report 6883687-3 (Version None)
Quarter: 2010Q3

REPORT INFORMATION
  Report Type: 
  Country: None (occurrence: None)
  Receive Date: 20100729
  Receipt Date: 20100716
  Transmission Date: 20110219
  Serious: Yes (Hospitalization)
  Sender: FDA-Public Use
  Company Number: A0867501A

PATIENT
  Age: 45 Year
  Sex: Male
  Weight: 88.2 kg

DRUGS (6)
  1. AVANDIA [Suspect]
  2. NORVASC [Concomitant]
  3. TRANDATE [Concomitant]
  4. LOTENSIN [Concomitant]
  5. HYDROCHLOROTHIAZIDE [Concomitant]
  6. ZOCOR [Concomitant]

REACTIONS (4)
  - CARDIAC FAILURE CONGESTIVE [None]
  - CORONARY ARTERY DISEASE [None]
  - DIABETES MELLITUS [None]
  - MYOCARDIAL INFARCTION [None]
